FAERS Safety Report 11489340 (Version 1)
Quarter: 2015Q3

REPORT INFORMATION
  Report Type: Spontaneous
  Country: US (occurrence: US)
  Receive Date: 20150910
  Receipt Date: 20150910
  Transmission Date: 20151125
  Serious: No
  Sender: FDA-Public Use
  Company Number: US-ROCHE-1588342

PATIENT
  Sex: Male

DRUGS (1)
  1. PEGASYS [Suspect]
     Active Substance: PEGINTERFERON ALFA-2A
     Indication: HEPATITIS B
     Dosage: 0.5 ML AUTO INJECTION KIT?INJECT 1 PEN SUBCUTANEOUSLY EVERY WEEK FOR 48 WEKS
     Route: 058

REACTIONS (1)
  - Drug ineffective [Unknown]
